FAERS Safety Report 11223368 (Version 1)
Quarter: 2015Q2

REPORT INFORMATION
  Report Type: Spontaneous
  Country: US (occurrence: US)
  Receive Date: 20150627
  Receipt Date: 20150627
  Transmission Date: 20150821
  Serious: Yes (Other)
  Sender: FDA-Public Use
  Company Number: US-JNJFOC-20150613881

PATIENT
  Age: 69 Year
  Sex: Female
  Weight: 73.9 kg

DRUGS (5)
  1. UNSPECIFIED STUDY DRUG [Suspect]
     Active Substance: UNSPECIFIED INGREDIENT
     Indication: SPLENIC MARGINAL ZONE LYMPHOMA STAGE I
     Route: 048
     Dates: start: 20140729, end: 20140903
  2. UNSPECIFIED STUDY DRUG [Suspect]
     Active Substance: UNSPECIFIED INGREDIENT
     Indication: SPLENIC MARGINAL ZONE LYMPHOMA STAGE I
     Route: 048
     Dates: start: 20140929, end: 20141002
  3. TYLENOL [Suspect]
     Active Substance: ACETAMINOPHEN
     Indication: PYREXIA
     Route: 065
     Dates: start: 20140829, end: 20140829
  4. UNSPECIFIED STUDY DRUG [Suspect]
     Active Substance: UNSPECIFIED INGREDIENT
     Indication: SPLENIC MARGINAL ZONE LYMPHOMA STAGE I
     Route: 048
     Dates: start: 20140926, end: 20140927
  5. TYLENOL [Suspect]
     Active Substance: ACETAMINOPHEN
     Route: 065

REACTIONS (2)
  - Aspartate aminotransferase increased [Recovered/Resolved]
  - Alanine aminotransferase increased [Not Recovered/Not Resolved]

NARRATIVE: CASE EVENT DATE: 20140903
